FAERS Safety Report 19070160 (Version 1)
Quarter: 2021Q1

REPORT INFORMATION
  Report Type: Spontaneous
  Country: IT (occurrence: IT)
  Receive Date: 20210329
  Receipt Date: 20210329
  Transmission Date: 20210420
  Serious: Yes (Other)
  Sender: FDA-Public Use
  Company Number: IT-BAUSCH-BL-2021-009238

PATIENT
  Age: 69 Year
  Sex: Male

DRUGS (6)
  1. ENTECAVIR. [Concomitant]
     Active Substance: ENTECAVIR
     Indication: HEPATIC CIRRHOSIS
  2. TOCILIZUMAB. [Suspect]
     Active Substance: TOCILIZUMAB
     Indication: COVID-19
     Route: 065
  3. CEFTOBIPROLE [Suspect]
     Active Substance: CEFTOBIPROLE
     Indication: COVID-19
     Route: 042
  4. DEXAMETHASONE. [Suspect]
     Active Substance: DEXAMETHASONE
     Indication: COVID-19
     Route: 042
  5. ENTECAVIR. [Concomitant]
     Active Substance: ENTECAVIR
     Indication: HEPATITIS B
  6. DEXAMETHASONE. [Suspect]
     Active Substance: DEXAMETHASONE
     Indication: PRODUCT USE IN UNAPPROVED INDICATION

REACTIONS (3)
  - Product use in unapproved indication [Unknown]
  - Herpes simplex reactivation [Recovered/Resolved]
  - Bronchopulmonary aspergillosis [Recovered/Resolved]
